FAERS Safety Report 16507143 (Version 1)
Quarter: 2019Q3

REPORT INFORMATION
  Report Type: Spontaneous
  Country: US (occurrence: US)
  Receive Date: 20190701
  Receipt Date: 20190701
  Transmission Date: 20191004
  Serious: Yes (Other)
  Sender: FDA-Public Use
  Company Number: US-AKORN PHARMACEUTICALS-2019AKN01346

PATIENT
  Sex: Female
  Weight: 65.76 kg

DRUGS (1)
  1. MYORISAN [Suspect]
     Active Substance: ISOTRETINOIN
     Indication: ACNE
     Dosage: 80 MG, 2X/DAY
     Route: 048
     Dates: start: 20180311, end: 20190521

REACTIONS (3)
  - Affect lability [Recovered/Resolved]
  - Inappropriate affect [Recovered/Resolved]
  - Depressed mood [Recovered/Resolved]
